FAERS Safety Report 5031106-4 (Version None)
Quarter: 2006Q2

REPORT INFORMATION
  Report Type: 
  Country: None (occurrence: None)
  Receive Date: 20060619
  Receipt Date: 20060619
  Transmission Date: 20061013
  Serious: No
  Sender: FDA-Public Use
  Company Number: None

PATIENT
  Age: 65 Year
  Sex: Male
  Weight: 90.7194 kg

DRUGS (1)
  1. OMACOR [Suspect]
     Indication: HYPERCHOLESTEROLAEMIA
     Dosage: 1 DAILY PO
     Route: 048
     Dates: start: 20051231, end: 20060617

REACTIONS (3)
  - ASTHENIA [None]
  - CHEST DISCOMFORT [None]
  - DYSPNOEA [None]
